FAERS Safety Report 19164935 (Version 1)
Quarter: 2021Q2

REPORT INFORMATION
  Report Type: Spontaneous
  Country: FR (occurrence: FR)
  Receive Date: 20210421
  Receipt Date: 20210421
  Transmission Date: 20210717
  Serious: Yes (Other)
  Sender: FDA-Public Use
  Company Number: FR-TEVA-2021-FR-1903000

PATIENT
  Age: 45 Year
  Sex: Male

DRUGS (9)
  1. APREPITANT. [Concomitant]
     Active Substance: APREPITANT
     Dosage: 3DF
     Route: 048
     Dates: start: 20210203
  2. METOCLOPRAMIDE. [Concomitant]
     Active Substance: METOCLOPRAMIDE
     Route: 048
  3. OMEPRAZOLE. [Concomitant]
     Active Substance: OMEPRAZOLE
     Dosage: 1DF
     Route: 048
     Dates: start: 20210203
  4. RITUXIMAB ((MAMMIFERE/HAMSTER/CELLULES CHO)) [Suspect]
     Active Substance: RITUXIMAB
     Indication: B-CELL LYMPHOMA
     Dosage: 375MG/M2
     Route: 041
     Dates: start: 20170424
  5. DEXAMETHASONE. [Concomitant]
     Active Substance: DEXAMETHASONE
     Dosage: 80MG
     Route: 042
     Dates: start: 20210205
  6. ONDANSETRON [Concomitant]
     Active Substance: ONDANSETRON
     Dosage: 2DF
     Route: 048
     Dates: start: 20210203
  7. CYTARABINE. [Suspect]
     Active Substance: CYTARABINE
     Indication: B-CELL LYMPHOMA
     Dosage: 2000MG/M2
     Route: 041
     Dates: start: 20210203
  8. FILGRASTIM ((BACTERIE/ESCHERICHIA COLI)) [Suspect]
     Active Substance: FILGRASTIM
     Indication: NEUTROPENIA
     Route: 058
     Dates: start: 20210209, end: 20210215
  9. OXALIPLATINE [Suspect]
     Active Substance: OXALIPLATIN
     Indication: B-CELL LYMPHOMA
     Dosage: 130MG/M2
     Route: 041
     Dates: start: 20210203

REACTIONS (1)
  - Hepatic cytolysis [Recovering/Resolving]

NARRATIVE: CASE EVENT DATE: 20210222
